FAERS Safety Report 4774744-6 (Version None)
Quarter: 2005Q3

REPORT INFORMATION
  Report Type: 
  Country: None (occurrence: None)
  Receive Date: 20050921
  Receipt Date: 20050908
  Transmission Date: 20060218
  Serious: Yes (Other)
  Sender: FDA-Public Use
  Company Number: 12488466

PATIENT
  Age: 29 Year
  Sex: Female

DRUGS (3)
  1. ZIDOVUDINE [Suspect]
     Indication: HIV INFECTION
     Dates: start: 20030327
  2. DIDANOSINE [Suspect]
     Indication: HIV INFECTION
     Dates: start: 20030327
  3. NEVIRAPINE [Suspect]
     Indication: HIV INFECTION
     Dates: start: 20030327

REACTIONS (1)
  - GAMMA-GLUTAMYLTRANSFERASE INCREASED [None]
